FAERS Safety Report 25900345 (Version 2)
Quarter: 2025Q4

REPORT INFORMATION
  Report Type: Report from Study
  Country: US (occurrence: None)
  Receive Date: 20251009
  Receipt Date: 20251117
  Transmission Date: 20260118
  Serious: Yes (Other)
  Sender: UCB
  Company Number: US-UCBSA-2025031448

PATIENT
  Age: 9 Year
  Weight: 21.8 kg

DRUGS (10)
  1. FENFLURAMINE [Suspect]
     Active Substance: FENFLURAMINE
     Indication: Lennox-Gastaut syndrome
     Dosage: 5 MILLILITER, 2X/DAY (BID)
  2. FENFLURAMINE [Suspect]
     Active Substance: FENFLURAMINE
     Dosage: 10 MILLILITER PER DAY
  3. cetlrlzlne [Concomitant]
     Indication: Hypersensitivity
     Dosage: 5 MILLILITER, ONCE DAILY (QD)
  4. CLONIDINE [Concomitant]
     Active Substance: CLONIDINE
     Indication: Sleep disorder
     Dosage: TAKE 1 TABLET(S) EVERY DAY BY ORAL ROUTE IN THE EVENING.
  5. CLONIDINE [Concomitant]
     Active Substance: CLONIDINE
     Dosage: 0.2 MILLILITER, ONCE DAILY (QD)
  6. KEPPRA [Concomitant]
     Active Substance: LEVETIRACETAM
     Indication: Product used for unknown indication
     Dosage: UNK
  7. KEPPRA [Concomitant]
     Active Substance: LEVETIRACETAM
     Dosage: 10 MILLILITER, 2X/DAY (BID)
  8. SYMPAZAN [Concomitant]
     Active Substance: CLOBAZAM
     Indication: Seizure
     Dosage: 10 MILLIGRAM, ONCE DAILY (QD)
  9. SYMPAZAN [Concomitant]
     Active Substance: CLOBAZAM
     Dosage: 20 MILLIGRAM ORAL ROUTE IN THE EVENING.
  10. VALTOCO [Concomitant]
     Active Substance: DIAZEPAM
     Indication: Seizure
     Dosage: 10 MILLIGRAM FOR 5 MIN XL OR SEIZURE CLUSTER

REACTIONS (3)
  - Vagal nerve stimulator implantation [Not Recovered/Not Resolved]
  - Loss of consciousness [Unknown]
  - Stress [Unknown]
